FAERS Safety Report 17007382 (Version 2)
Quarter: 2020Q1

REPORT INFORMATION
  Report Type: Spontaneous
  Country: US (occurrence: US)
  Receive Date: 20191108
  Receipt Date: 20200227
  Transmission Date: 20200409
  Serious: No
  Sender: FDA-Public Use
  Company Number: US-AMGEN-USASP2019182935

PATIENT
  Sex: Female

DRUGS (2)
  1. ENBREL [Suspect]
     Active Substance: ETANERCEPT
     Indication: PRODUCT USED FOR UNKNOWN INDICATION
     Dosage: UNK
     Route: 065
  2. HUMIRA [Suspect]
     Active Substance: ADALIMUMAB
     Indication: PSORIASIS
     Dosage: UNK
     Route: 058

REACTIONS (11)
  - Burning sensation [Unknown]
  - Therapeutic product effect decreased [Unknown]
  - Allergy to plants [Unknown]
  - Skin haemorrhage [Not Recovered/Not Resolved]
  - Inflammation [Unknown]
  - Hot flush [Unknown]
  - Crying [Not Recovered/Not Resolved]
  - Psoriasis [Recovered/Resolved]
  - Food allergy [Unknown]
  - Scratch [Not Recovered/Not Resolved]
  - Pruritus [Not Recovered/Not Resolved]
